FAERS Safety Report 20470324 (Version 3)
Quarter: 2022Q1

REPORT INFORMATION
  Report Type: Report from Study
  Country: CA (occurrence: CA)
  Receive Date: 20220214
  Receipt Date: 20220322
  Transmission Date: 20220423
  Serious: Yes (Other)
  Sender: FDA-Public Use
  Company Number: CA-TAKEDA-2022TUS010094

PATIENT
  Age: 48 Year
  Sex: Male

DRUGS (3)
  1. VEDOLIZUMAB [Suspect]
     Active Substance: VEDOLIZUMAB
     Indication: Crohn^s disease
     Dosage: 300 MILLIGRAM
     Route: 042
     Dates: start: 20210709
  2. PENTASA [Concomitant]
     Active Substance: MESALAMINE
     Dosage: UNK
  3. ENTOCORT [Concomitant]
     Active Substance: BUDESONIDE
     Dosage: UNK

REACTIONS (3)
  - Crohn^s disease [Recovered/Resolved]
  - Stress [Not Recovered/Not Resolved]
  - Bursa disorder [Unknown]

NARRATIVE: CASE EVENT DATE: 20220226
